FAERS Safety Report 9236652 (Version 2)
Quarter: 2013Q4

REPORT INFORMATION
  Report Type: Spontaneous
  Country: GB (occurrence: US)
  Receive Date: 20130417
  Receipt Date: 20131011
  Transmission Date: 20140711
  Serious: Yes (Hospitalization, Other)
  Sender: FDA-Public Use
  Company Number: GB-NICOBRDEVP-2013-06159

PATIENT
  Age: 77 Year
  Sex: Male

DRUGS (5)
  1. VERAPAMIL HYDROCHLORIDE (WATSON LABORATORIES) [Suspect]
     Indication: ATRIAL FIBRILLATION
     Dosage: 80 MG, TID
     Route: 065
  2. WARFARIN (UNKNOWN) [Interacting]
     Indication: ATRIAL FIBRILLATION
     Dosage: UNK UNK, DAILY
     Route: 065
  3. LEVOTHYROXINE (UNKNOWN) [Interacting]
     Indication: HYPOTHYROIDISM
     Dosage: 150 MICROGRAMS, DAILY
     Route: 065
  4. TAMSULOSIN (UNKNOWN) [Interacting]
     Indication: PROSTATOMEGALY
     Dosage: 400 MICROGRAMS, DAILY
     Route: 065
  5. CLENIL MODULITE [Interacting]
     Indication: ASTHMA
     Dosage: 200 MICROGRAMS, BID
     Route: 055
     Dates: start: 20130219

REACTIONS (5)
  - Cerebrovascular accident [Unknown]
  - International normalised ratio decreased [Unknown]
  - Haemorrhage [Unknown]
  - Drug interaction [Unknown]
  - Therapeutic response unexpected [Unknown]
